FAERS Safety Report 20491481 (Version 1)
Quarter: 2022Q1

REPORT INFORMATION
  Report Type: Spontaneous
  Country: US (occurrence: None)
  Receive Date: 20220218
  Receipt Date: 20220218
  Transmission Date: 20220423
  Serious: Yes (Other)
  Sender: FDA-Public Use
  Company Number: None

PATIENT
  Sex: Female

DRUGS (4)
  1. HUMIRA [Suspect]
     Active Substance: ADALIMUMAB
     Indication: Hidradenitis
     Dosage: OTHER FREQUENCY : 40 MG/0.4ML ;?
     Route: 058
     Dates: start: 20200108
  2. AMLOD/ATORVA [Concomitant]
  3. DOXYCYCLINE HYCLATE [Concomitant]
     Active Substance: DOXYCYCLINE HYCLATE
  4. HUMIRA CF PEN-CD/UC/HS START [Concomitant]

REACTIONS (2)
  - Exposure during pregnancy [None]
  - Abortion spontaneous [None]
